FAERS Safety Report 16883032 (Version 1)
Quarter: 2019Q4

REPORT INFORMATION
  Report Type: Spontaneous
  Country: IT (occurrence: IT)
  Receive Date: 20191004
  Receipt Date: 20191004
  Transmission Date: 20200122
  Serious: Yes (Other)
  Sender: FDA-Public Use
  Company Number: IT-SUN PHARMACEUTICAL INDUSTRIES LTD-2019RR-222363

PATIENT
  Age: 43 Year
  Sex: Female

DRUGS (2)
  1. SUMATRIPTAN SUN 6 MG/0,5 ML SOLUZIONE INIETTABILE [Suspect]
     Active Substance: SUMATRIPTAN SUCCINATE
     Indication: HEMIPLEGIC MIGRAINE
     Dosage: AS NECESSARY
     Route: 058
     Dates: start: 20190829, end: 20190829
  2. TOPAMAX [Concomitant]
     Active Substance: TOPIRAMATE
     Indication: HEMIPLEGIC MIGRAINE
     Dosage: 100 MILLIGRAM, DAILY
     Route: 048
     Dates: start: 20080701

REACTIONS (2)
  - Drug ineffective [Recovered/Resolved]
  - Hemiplegic migraine [Recovered/Resolved]

NARRATIVE: CASE EVENT DATE: 20190829
